FAERS Safety Report 7049183-8 (Version None)
Quarter: 2010Q4

REPORT INFORMATION
  Report Type: 
  Country: None (occurrence: None)
  Receive Date: 20101012
  Receipt Date: 20100928
  Transmission Date: 20110411
  Serious: Yes (Other)
  Sender: FDA-Public Use
  Company Number: 019492

PATIENT
  Age: 20 Year
  Sex: Male

DRUGS (1)
  1. KEPPRA [Suspect]
     Dosage: (1000 MG ORAL)
     Route: 048
     Dates: start: 20100701, end: 20100928

REACTIONS (3)
  - DERMATITIS BULLOUS [None]
  - ECZEMA [None]
  - SKIN DISORDER [None]
